FAERS Safety Report 22314368 (Version 1)
Quarter: 2023Q2

REPORT INFORMATION
  Report Type: Spontaneous
  Country: US (occurrence: US)
  Receive Date: 20230512
  Receipt Date: 20230512
  Transmission Date: 20230722
  Serious: Yes (Hospitalization, Other)
  Sender: FDA-Public Use
  Company Number: US-HALEON-USCH2023AMR019808

PATIENT
  Age: 67 Year
  Sex: Female
  Weight: 59.19 kg

DRUGS (10)
  1. HYDROCORTISONE [Suspect]
     Active Substance: HYDROCORTISONE
     Indication: Product used for unknown indication
     Dosage: UNK
  2. NEXIUM 24HR [Suspect]
     Active Substance: ESOMEPRAZOLE MAGNESIUM
     Indication: Arthralgia
     Dosage: UNK
  3. NEXIUM 24HR [Suspect]
     Active Substance: ESOMEPRAZOLE MAGNESIUM
     Indication: Gait disturbance
  4. CABOMETYX [Suspect]
     Active Substance: CABOZANTINIB S-MALATE
     Indication: Renal cancer
     Dosage: 20 MG, QD
     Route: 048
     Dates: start: 20211104, end: 20220822
  5. CABOMETYX [Suspect]
     Active Substance: CABOZANTINIB S-MALATE
     Dosage: 20 MG, QD
     Dates: start: 202209, end: 202209
  6. CABOMETYX [Suspect]
     Active Substance: CABOZANTINIB S-MALATE
     Dosage: 20 MG, QD
  7. OPDIVO [Suspect]
     Active Substance: NIVOLUMAB
     Indication: Renal cancer
     Dosage: UNK
  8. LEVOTHYROXINE [Suspect]
     Active Substance: LEVOTHYROXINE
     Indication: Product used for unknown indication
     Dosage: UNK
  9. VALACYCLOVIR [Suspect]
     Active Substance: VALACYCLOVIR HYDROCHLORIDE
     Indication: Rash
     Dosage: UNK
  10. PREDNISONE [Suspect]
     Active Substance: PREDNISONE
     Indication: Haemorrhage
     Dosage: 80 MG, QD

REACTIONS (10)
  - Large intestinal haemorrhage [Recovered/Resolved]
  - Diarrhoea haemorrhagic [Recovering/Resolving]
  - Malignant neoplasm progression [Unknown]
  - Skin exfoliation [Not Recovered/Not Resolved]
  - Arthralgia [Unknown]
  - Gait disturbance [Unknown]
  - Weight increased [Unknown]
  - Skin ulcer [Unknown]
  - Rash [Unknown]
  - Product use in unapproved indication [Unknown]

NARRATIVE: CASE EVENT DATE: 20220101
